FAERS Safety Report 20883392 (Version 1)
Quarter: 2022Q2

REPORT INFORMATION
  Report Type: Spontaneous
  Country: US (occurrence: None)
  Receive Date: 20220526
  Receipt Date: 20220526
  Transmission Date: 20220721
  Serious: Yes (Other)
  Sender: FDA-Public Use
  Company Number: None

PATIENT
  Age: 64 Year
  Sex: Female
  Weight: 82.35 kg

DRUGS (1)
  1. MOXIE HAND SANITIZER [Suspect]
     Active Substance: ALCOHOL
     Indication: COVID-19
     Route: 061
     Dates: start: 20210901

REACTIONS (1)
  - Cough [None]

NARRATIVE: CASE EVENT DATE: 20220101
